FAERS Safety Report 6343183-9 (Version None)
Quarter: 2009Q3

REPORT INFORMATION
  Report Type: 
  Country: None (occurrence: None)
  Receive Date: 20090908
  Receipt Date: 20090902
  Transmission Date: 20100115
  Serious: Yes (Other)
  Sender: FDA-Public Use
  Company Number: US-BAYER-200913753BCC

PATIENT
  Age: 73 Year
  Sex: Female
  Weight: 76 kg

DRUGS (6)
  1. ALEVE [Suspect]
     Indication: HEADACHE
     Dosage: UNIT DOSE: 220 MG
     Route: 048
     Dates: start: 20090901
  2. ALEVE [Suspect]
     Dosage: UNIT DOSE: 220 MG
     Route: 048
     Dates: start: 20090902
  3. INSULIN [Concomitant]
     Route: 065
  4. AMLODIPINE [Concomitant]
     Route: 065
  5. HYZAAR [Concomitant]
     Route: 065
  6. OMEPRAZOLE [Concomitant]
     Route: 065

REACTIONS (1)
  - HAEMATOCHEZIA [None]
